FAERS Safety Report 4567981-7 (Version None)
Quarter: 2005Q1

REPORT INFORMATION
  Report Type: 
  Country: None (occurrence: None)
  Receive Date: 20050131
  Receipt Date: 20050118
  Transmission Date: 20050727
  Serious: Yes (Disabling)
  Sender: FDA-Public Use
  Company Number: 2005-FF-00031FF

PATIENT
  Age: 55 Year
  Sex: Male

DRUGS (1)
  1. MOBIC [Suspect]
     Indication: BACK PAIN
     Dosage: IM
     Route: 030
     Dates: start: 20040401

REACTIONS (4)
  - IATROGENIC INJURY [None]
  - IMPAIRED WORK ABILITY [None]
  - NEURITIS [None]
  - SCOTOMA [None]
